FAERS Safety Report 12647596 (Version 1)
Quarter: 2016Q3

REPORT INFORMATION
  Report Type: Spontaneous
  Country: US (occurrence: US)
  Receive Date: 20160812
  Receipt Date: 20160812
  Transmission Date: 20161109
  Serious: Yes (Disabling, Other)
  Sender: FDA-Public Use
  Company Number: US-ALEXION-A201605817

PATIENT
  Age: 49 Year
  Sex: Male

DRUGS (1)
  1. SOLIRIS [Suspect]
     Active Substance: ECULIZUMAB
     Indication: PAROXYSMAL NOCTURNAL HAEMOGLOBINURIA
     Dosage: UNK
     Route: 042

REACTIONS (5)
  - Septic shock [Unknown]
  - Asplenia [Unknown]
  - Necrosis ischaemic [Unknown]
  - Coombs positive haemolytic anaemia [Unknown]
  - Lymphocytic leukaemia [Unknown]

NARRATIVE: CASE EVENT DATE: 2009
